FAERS Safety Report 15049098 (Version 1)
Quarter: 2018Q2

REPORT INFORMATION
  Report Type: Spontaneous
  Country: ES (occurrence: ES)
  Receive Date: 20180622
  Receipt Date: 20180622
  Transmission Date: 20180711
  Serious: Yes (Other)
  Sender: FDA-Public Use
  Company Number: PHHY2018ES019912

PATIENT
  Sex: Female

DRUGS (2)
  1. DABRAFENIB [Suspect]
     Active Substance: DABRAFENIB
     Indication: METASTATIC MALIGNANT MELANOMA
     Dosage: UNK
     Route: 065
  2. TRAMETINIB [Suspect]
     Active Substance: TRAMETINIB
     Indication: METASTATIC MALIGNANT MELANOMA
     Dosage: UNK
     Route: 065

REACTIONS (8)
  - Erythema [Recovered/Resolved]
  - Skin plaque [Recovered/Resolved]
  - Nodule [Recovered/Resolved]
  - Tenderness [Recovered/Resolved]
  - Oedema [Recovered/Resolved]
  - Acute febrile neutrophilic dermatosis [Recovered/Resolved]
  - Pyrexia [Recovered/Resolved]
  - Papule [Recovered/Resolved]
